FAERS Safety Report 14329820 (Version 3)
Quarter: 2018Q2

REPORT INFORMATION
  Report Type: Report from Study
  Country: GB (occurrence: GB)
  Receive Date: 20171227
  Receipt Date: 20180411
  Transmission Date: 20180711
  Serious: Yes (Other)
  Sender: FDA-Public Use
  Company Number: GB-BRISTOL-MYERS SQUIBB COMPANY-BMS-2017-117039

PATIENT
  Age: 62 Year
  Sex: Female

DRUGS (1)
  1. ABATACEPT [Suspect]
     Active Substance: ABATACEPT
     Indication: RHEUMATOID ARTHRITIS
     Dosage: 125 MG, QWK
     Route: 058
     Dates: start: 20170804

REACTIONS (9)
  - Malaise [Unknown]
  - Abdominal discomfort [Unknown]
  - Oral pain [Unknown]
  - Oral herpes [Unknown]
  - Sinus disorder [Unknown]
  - Eye infection [Unknown]
  - Deafness [Unknown]
  - Conjunctivitis [Unknown]
  - Ear disorder [Unknown]

NARRATIVE: CASE EVENT DATE: 201708
